FAERS Safety Report 7266413-8 (Version None)
Quarter: 2011Q1

REPORT INFORMATION
  Report Type: 
  Country: None (occurrence: None)
  Receive Date: 20110131
  Receipt Date: 20110121
  Transmission Date: 20110831
  Serious: Yes (Death, Other)
  Sender: FDA-Public Use
  Company Number: JP-AMGEN-JPNCT2010004160

PATIENT
  Age: 67 Year
  Sex: Male
  Weight: 63 kg

DRUGS (17)
  1. LANSOPRAZOLE [Concomitant]
     Route: 048
     Dates: start: 20100310, end: 20101020
  2. ADALAT CC [Concomitant]
     Indication: HYPERTENSION
     Route: 048
     Dates: start: 20100324, end: 20101020
  3. PANITUMUMAB [Suspect]
     Indication: COLORECTAL CANCER
     Dosage: 6 MG/KG, Q2WK
     Route: 041
     Dates: start: 20100818, end: 20100818
  4. CORTICOSTEROIDS [Concomitant]
     Indication: PROPHYLAXIS
     Dosage: UNK
     Route: 065
  5. ANTIHISTAMINES [Concomitant]
     Indication: PROPHYLAXIS
     Dosage: UNK
     Route: 065
  6. GABAPENTIN [Concomitant]
     Route: 048
     Dates: start: 20100310, end: 20101020
  7. IRINOTECAN HYDROCHLORIDE [Concomitant]
     Indication: COLORECTAL CANCER
     Route: 041
     Dates: start: 20100818, end: 20101006
  8. ALOXI [Concomitant]
     Dosage: UNK
     Route: 042
  9. FLUOROURACIL [Concomitant]
     Indication: COLORECTAL CANCER
     Route: 040
     Dates: start: 20100818, end: 20101006
  10. CALCIUM LEVOFOLINATE [Concomitant]
     Indication: COLORECTAL CANCER
     Route: 041
     Dates: start: 20100818, end: 20101006
  11. DECADRON PHOSPHATE [Concomitant]
     Dosage: UNK
     Route: 042
  12. FLUOROURACIL [Concomitant]
     Route: 041
     Dates: start: 20100818, end: 20101006
  13. GASTER [Concomitant]
     Dosage: UNK
     Route: 042
  14. TSUMURA GOSHAJINKIGAN [Concomitant]
     Route: 048
     Dates: start: 20100310, end: 20101020
  15. PYDOXAL [Concomitant]
     Route: 048
     Dates: start: 20100310, end: 20101020
  16. MIYA-BM [Concomitant]
     Route: 048
     Dates: start: 20100310, end: 20101020
  17. POLARAMINE [Concomitant]
     Dosage: UNK
     Route: 042

REACTIONS (3)
  - RASH PUSTULAR [None]
  - PAPULE [None]
  - VENTRICULAR FIBRILLATION [None]
